FAERS Safety Report 5648555-3 (Version None)
Quarter: 2008Q1

REPORT INFORMATION
  Report Type: 
  Country: None (occurrence: None)
  Receive Date: 20080303
  Receipt Date: 20080303
  Transmission Date: 20080703
  Serious: No
  Sender: FDA-Public Use
  Company Number: None

PATIENT
  Sex: Female
  Weight: 58.9676 kg

DRUGS (1)
  1. LAMISIL [Suspect]
     Indication: ONYCHOMYCOSIS
     Dosage: 1 TABLET EVERYDAY PO
     Route: 048
     Dates: start: 20060814, end: 20061108

REACTIONS (2)
  - DYSGEUSIA [None]
  - ORAL DISCOMFORT [None]
